FAERS Safety Report 6559909-5 (Version None)
Quarter: 2010Q1

REPORT INFORMATION
  Report Type: 
  Country: None (occurrence: None)
  Receive Date: 20100129
  Receipt Date: 20090910
  Transmission Date: 20100710
  Serious: No
  Sender: FDA-Public Use
  Company Number: US-ABBOTT-09P-163-0597144-00

PATIENT
  Sex: Male
  Weight: 88.076 kg

DRUGS (7)
  1. HUMIRA [Suspect]
     Indication: PSORIASIS
     Dates: start: 20090910, end: 20090910
  2. METFORMIN [Concomitant]
     Indication: DIABETES MELLITUS
  3. VICODIN [Concomitant]
     Indication: PAIN
  4. CELEXA [Concomitant]
     Indication: ANXIETY
  5. XANAX [Concomitant]
     Indication: ANXIETY
  6. UNKNOWN LOTION [Concomitant]
     Indication: PSORIASIS
     Route: 061
  7. ZYRTEC [Concomitant]
     Indication: HYPERSENSITIVITY

REACTIONS (1)
  - INJECTION SITE PAIN [None]
